FAERS Safety Report 23039472 (Version 7)
Quarter: 2025Q2

REPORT INFORMATION
  Report Type: Spontaneous
  Country: US (occurrence: US)
  Receive Date: 20231006
  Receipt Date: 20250528
  Transmission Date: 20250717
  Serious: Yes (Hospitalization, Other)
  Sender: PFIZER
  Company Number: US-PFIZER INC-PV202300156742

PATIENT
  Age: 59 Year
  Sex: Female

DRUGS (2)
  1. CIBINQO [Suspect]
     Active Substance: ABROCITINIB
     Dosage: 100 MG, 1X/DAY
     Route: 048
  2. CIBINQO [Suspect]
     Active Substance: ABROCITINIB
     Dosage: 200 MG, 1X/DAY

REACTIONS (6)
  - Dementia Alzheimer^s type [Unknown]
  - Shoulder operation [Unknown]
  - Breast cancer female [Unknown]
  - Rash [Unknown]
  - Pain [Unknown]
  - Pain in extremity [Unknown]
